FAERS Safety Report 6563340-6 (Version None)
Quarter: 2010Q1

REPORT INFORMATION
  Report Type: 
  Country: None (occurrence: None)
  Receive Date: 20100130
  Receipt Date: 20091211
  Transmission Date: 20100710
  Serious: No
  Sender: FDA-Public Use
  Company Number: US-ABBOTT-09P-163-0613766-00

PATIENT
  Sex: Male
  Weight: 74.91 kg

DRUGS (2)
  1. HUMIRA [Suspect]
     Indication: CROHN'S DISEASE
     Dosage: DOSE SPLIT BETWEEN TWO DAYS
     Dates: start: 20091117
  2. HUMIRA [Suspect]
     Dosage: DAY 15
     Dates: start: 20090519, end: 20090826

REACTIONS (2)
  - BALANCE DISORDER [None]
  - FEELING ABNORMAL [None]
